FAERS Safety Report 4302871-6 (Version None)
Quarter: 2004Q1

REPORT INFORMATION
  Report Type: 
  Country: None (occurrence: None)
  Receive Date: 20040223
  Receipt Date: 20040223
  Transmission Date: 20041129
  Serious: Yes (Other)
  Sender: FDA-Public Use
  Company Number: None

PATIENT
  Sex: Female
  Weight: 95.2554 kg

DRUGS (3)
  1. GLUCOPHAGE XR [Suspect]
     Dosage: 500 MG ORAL
     Route: 048
  2. TOPROL-XL [Concomitant]
  3. ACTOS [Concomitant]

REACTIONS (3)
  - PAINFUL DEFAECATION [None]
  - PHARMACEUTICAL PRODUCT COMPLAINT [None]
  - RECTAL HAEMORRHAGE [None]
